FAERS Safety Report 4899894-5 (Version None)
Quarter: 2006Q1

REPORT INFORMATION
  Report Type: 
  Country: None (occurrence: None)
  Receive Date: 20060118
  Receipt Date: 20050921
  Transmission Date: 20060701
  Serious: No
  Sender: FDA-Public Use
  Company Number: 2005001856

PATIENT
  Age: 58 Year
  Sex: Female

DRUGS (6)
  1. TARCEVA [Suspect]
     Indication: NON-SMALL CELL LUNG CANCER
     Dosage: 150 MG (QD), ORAL
     Route: 048
     Dates: start: 20050401
  2. LITHIUM (LITHIUM) [Concomitant]
  3. WELLBUTRIN [Concomitant]
  4. LISINOPRIL [Concomitant]
  5. RISPERDAL [Concomitant]
  6. CLONOPIN (CLONAZEPAM) [Concomitant]

REACTIONS (2)
  - ALOPECIA [None]
  - FATIGUE [None]
